FAERS Safety Report 7490651-2 (Version None)
Quarter: 2011Q2

REPORT INFORMATION
  Report Type: 
  Country: None (occurrence: None)
  Receive Date: 20110517
  Receipt Date: 20110517
  Transmission Date: 20111010
  Serious: No
  Sender: FDA-Public Use
  Company Number: None

PATIENT
  Age: 69 Year
  Sex: Female
  Weight: 68.0396 kg

DRUGS (1)
  1. RESTASIS [Suspect]
     Indication: DRY EYE
     Dosage: VIAL 2X/DAY OPHTHALMIC  ONE TIME
     Route: 047
     Dates: start: 20110515, end: 20110515

REACTIONS (4)
  - DRY EYE [None]
  - EYE PAIN [None]
  - OCULAR HYPERAEMIA [None]
  - EYE SWELLING [None]
